FAERS Safety Report 8618988-1 (Version None)
Quarter: 2012Q3

REPORT INFORMATION
  Report Type: 
  Country: None (occurrence: None)
  Receive Date: 20120824
  Receipt Date: 20120817
  Transmission Date: 20120928
  Serious: Yes (Other)
  Sender: FDA-Public Use
  Company Number: PHFR2012GB004556

PATIENT

DRUGS (1)
  1. ILARIS [Suspect]
     Dosage: UNK

REACTIONS (1)
  - PNEUMONIA [None]
